FAERS Safety Report 9288542 (Version 2)
Quarter: 2013Q2

REPORT INFORMATION
  Report Type: Spontaneous
  Country: JP (occurrence: JP)
  Receive Date: 20130514
  Receipt Date: 20130613
  Transmission Date: 20140414
  Serious: No
  Sender: FDA-Public Use
  Company Number: JP-009507513-1305JPN006894

PATIENT
  Age: 60 Year
  Sex: Female

DRUGS (7)
  1. EMEND [Suspect]
     Indication: PROPHYLAXIS OF NAUSEA AND VOMITING
     Dosage: 125 MG, QD
     Route: 048
     Dates: start: 20130117, end: 20130117
  2. EMEND [Suspect]
     Dosage: 80 MG, QD
     Route: 048
     Dates: start: 20130118, end: 20130119
  3. OXALIPLATIN [Suspect]
     Indication: COLON CANCER
     Dosage: 85 MG/M2, QD
     Route: 041
     Dates: start: 20130117, end: 20130117
  4. FLUOROURACIL [Suspect]
     Indication: COLON CANCER
     Dosage: 2717 MG/M2, QD
     Route: 041
     Dates: start: 20130117, end: 20130117
  5. LEVOLEUCOVORIN CALCIUM [Suspect]
     Indication: COLON CANCER
     Dosage: 200 MG/M2, QD
     Route: 041
     Dates: start: 20130117
  6. ALOXI [Concomitant]
     Dosage: UNK
     Dates: start: 20130117, end: 20130117
  7. DEXAMETHASONE SODIUM PHOSPHATE [Concomitant]
     Dosage: UNK
     Dates: start: 20130117, end: 20130117

REACTIONS (3)
  - Neuropathy peripheral [Unknown]
  - Neutrophil count decreased [Unknown]
  - Stomatitis [Recovered/Resolved]
